FAERS Safety Report 4502974-7 (Version None)
Quarter: 2004Q4

REPORT INFORMATION
  Report Type: 
  Country: None (occurrence: None)
  Receive Date: 20041112
  Receipt Date: 20041029
  Transmission Date: 20050328
  Serious: Yes (Disabling, Other)
  Sender: FDA-Public Use
  Company Number: 2004078479

PATIENT
  Age: 72 Year
  Sex: Male

DRUGS (2)
  1. VIAGRA [Suspect]
     Indication: ERECTILE DYSFUNCTION
     Dosage: 100 MG, AS NECESSARY, ORAL
     Route: 048
  2. LEVOTHYROXINE SODIUM [Concomitant]

REACTIONS (2)
  - BLINDNESS UNILATERAL [None]
  - OPTIC ISCHAEMIC NEUROPATHY [None]
